FAERS Safety Report 24194653 (Version 1)
Quarter: 2024Q3

REPORT INFORMATION
  Report Type: Report from Study
  Country: US (occurrence: US)
  Receive Date: 20240809
  Receipt Date: 20240809
  Transmission Date: 20241017
  Serious: Yes (Hospitalization, Other)
  Sender: MYLAN
  Company Number: US-MYLANLABS-2024M1073740

PATIENT
  Sex: Male

DRUGS (2)
  1. AMLODIPINE [Suspect]
     Active Substance: AMLODIPINE BESYLATE
     Indication: Product used for unknown indication
     Dosage: UNK
     Route: 065
  2. ENZALUTAMIDE [Suspect]
     Active Substance: ENZALUTAMIDE
     Indication: Prostate cancer
     Dosage: 160 MILLIGRAM, QD(ONCE DAILY)
     Route: 048

REACTIONS (8)
  - Blood potassium decreased [Unknown]
  - Pneumonia [Unknown]
  - Mental status changes [Unknown]
  - Fall [Unknown]
  - Disorientation [Unknown]
  - Eating disorder [Unknown]
  - Asthenia [Unknown]
  - Hypotension [Unknown]
